FAERS Safety Report 5485450-7 (Version None)
Quarter: 2007Q4

REPORT INFORMATION
  Report Type: 
  Country: None (occurrence: None)
  Receive Date: 20071010
  Receipt Date: 20071010
  Transmission Date: 20080405
  Serious: Yes (Life-Threatening, Hospitalization)
  Sender: FDA-Public Use
  Company Number: None

PATIENT
  Age: 67 Year
  Sex: Male

DRUGS (1)
  1. HALOPERIDOL [Suspect]
     Indication: AGITATION
     Dosage: 5 MG  Q8H  IV
     Route: 042
     Dates: start: 20060118, end: 20070120

REACTIONS (3)
  - ARRHYTHMIA [None]
  - DYSTONIA [None]
  - TARDIVE DYSKINESIA [None]
